FAERS Safety Report 7362099-2 (Version None)
Quarter: 2011Q1

REPORT INFORMATION
  Report Type: 
  Country: None (occurrence: None)
  Receive Date: 20110318
  Receipt Date: 20110311
  Transmission Date: 20110831
  Serious: Yes (Other)
  Sender: FDA-Public Use
  Company Number: DE-TEVA-271036GER

PATIENT
  Sex: Male

DRUGS (4)
  1. PANTOPRAZOLE [Suspect]
     Indication: HELICOBACTER INFECTION
     Route: 048
  2. ZACPAC [Concomitant]
  3. AMOXICILLIN [Suspect]
     Indication: HELICOBACTER INFECTION
     Route: 048
  4. CLARITHROMYCIN [Suspect]
     Indication: HELICOBACTER INFECTION
     Route: 048

REACTIONS (3)
  - DERMATITIS HERPETIFORMIS [None]
  - PRURITUS [None]
  - ERYTHEMA [None]
